FAERS Safety Report 5932539-1 (Version None)
Quarter: 2008Q4

REPORT INFORMATION
  Report Type: 
  Country: None (occurrence: None)
  Receive Date: 20081028
  Receipt Date: 20081021
  Transmission Date: 20090506
  Serious: Yes (Hospitalization, Other)
  Sender: FDA-Public Use
  Company Number: US-BAYER-200834255NA

PATIENT
  Age: 24 Year
  Sex: Female
  Weight: 88 kg

DRUGS (4)
  1. MIRENA [Suspect]
     Indication: CONTRACEPTION
     Route: 015
     Dates: start: 20080912, end: 20080912
  2. MIRENA [Suspect]
     Route: 015
     Dates: start: 20080912, end: 20080916
  3. IBUPROFEN TABLETS [Concomitant]
     Indication: PROCEDURAL PAIN
     Route: 048
  4. DIFLUCAN [Concomitant]
     Indication: CANDIDIASIS
     Dosage: AS USED: 150 MG
     Route: 048

REACTIONS (8)
  - ABDOMINAL PAIN [None]
  - CERVICAL DISCHARGE [None]
  - COMPLICATION OF DEVICE INSERTION [None]
  - INTRA-UTERINE CONTRACEPTIVE DEVICE EXPELLED [None]
  - IUCD COMPLICATION [None]
  - PELVIC PAIN [None]
  - PROCEDURAL PAIN [None]
  - UTERINE RUPTURE [None]
